FAERS Safety Report 15313477 (Version 1)
Quarter: 2018Q3

REPORT INFORMATION
  Report Type: Spontaneous
  Country: US (occurrence: US)
  Receive Date: 20180824
  Receipt Date: 20180824
  Transmission Date: 20181010
  Serious: Yes (Hospitalization, Other)
  Sender: FDA-Public Use
  Company Number: US-ASTRAZENECA-2018SF04526

PATIENT
  Age: 819 Month
  Sex: Female
  Weight: 58.5 kg

DRUGS (8)
  1. BRILINTA [Suspect]
     Active Substance: TICAGRELOR
     Indication: CORONARY ARTERY BYPASS
     Route: 048
     Dates: start: 20170210
  2. CELEXA [Concomitant]
     Active Substance: CITALOPRAM HYDROBROMIDE
     Indication: DEPRESSION
     Route: 048
     Dates: start: 2016
  3. LEVOTHYROXINE. [Concomitant]
     Active Substance: LEVOTHYROXINE
     Indication: HYPERSENSITIVITY
     Route: 048
     Dates: start: 2015
  4. METOPROLOL SUCCINATE. [Suspect]
     Active Substance: METOPROLOL SUCCINATE
     Indication: ATRIAL FIBRILLATION
     Route: 048
     Dates: start: 201501
  5. ASPIRIN. [Concomitant]
     Active Substance: ASPIRIN
     Route: 048
  6. METOPROLOL SUCCINATE. [Suspect]
     Active Substance: METOPROLOL SUCCINATE
     Indication: ATRIAL FIBRILLATION
     Route: 048
     Dates: start: 201804
  7. VITAMIN D [Concomitant]
     Active Substance: CHOLECALCIFEROL
     Dosage: 5000 DAILY
     Route: 048
  8. RANITIDINE. [Concomitant]
     Active Substance: RANITIDINE
     Indication: GASTROINTESTINAL DISORDER
     Route: 048

REACTIONS (12)
  - Heart rate increased [Recovered/Resolved]
  - Blood pressure increased [Recovered/Resolved]
  - Hypobarism [Recovered/Resolved]
  - Dizziness [Recovered/Resolved]
  - Vitamin D decreased [Unknown]
  - Electrocardiogram abnormal [Recovered/Resolved]
  - Chest discomfort [Recovered/Resolved]
  - Complication associated with device [Unknown]
  - Heart rate irregular [Recovered/Resolved]
  - Coronary artery occlusion [Unknown]
  - Dehydration [Recovered/Resolved]
  - Atrial fibrillation [Recovered/Resolved]

NARRATIVE: CASE EVENT DATE: 201702
